FAERS Safety Report 23049614 (Version 3)
Quarter: 2024Q3

REPORT INFORMATION
  Report Type: Report from Study
  Country: US (occurrence: US)
  Receive Date: 20231010
  Receipt Date: 20240809
  Transmission Date: 20241017
  Serious: Yes (Congenital Anomaly)
  Sender: MYLAN
  Company Number: US-MYLANLABS-2023M1106707

PATIENT
  Age: 1 Year
  Sex: Male
  Weight: 7.71 kg

DRUGS (3)
  1. EFFEXOR XR EXTENDED-RELEASE [Suspect]
     Active Substance: VENLAFAXINE HYDROCHLORIDE
     Indication: Product used for unknown indication
     Dosage: 37.5 MILLIGRAM, QD (PRN)
     Route: 064
     Dates: start: 2019
  2. TYLENOL [Concomitant]
     Active Substance: ACETAMINOPHEN
     Dosage: 1000 MILLIGRAM (PRN)
     Route: 064
     Dates: start: 202211
  3. LABETALOL [Concomitant]
     Active Substance: LABETALOL\LABETALOL HYDROCHLORIDE
     Dosage: 100 MILLIGRAM, BID
     Route: 064

REACTIONS (4)
  - Congenital renal cyst [Not Recovered/Not Resolved]
  - Kidney enlargement [Unknown]
  - Premature baby [Recovering/Resolving]
  - Breech presentation [Recovered/Resolved]

NARRATIVE: CASE EVENT DATE: 20230101
